FAERS Safety Report 22166633 (Version 1)
Quarter: 2023Q2

REPORT INFORMATION
  Report Type: Spontaneous
  Country: US (occurrence: US)
  Receive Date: 20230403
  Receipt Date: 20230403
  Transmission Date: 20230721
  Serious: No
  Sender: FDA-Public Use
  Company Number: US-BEH-2023157025

PATIENT
  Sex: Female

DRUGS (1)
  1. PRIVIGEN [Suspect]
     Active Substance: HUMAN IMMUNOGLOBULIN G
     Indication: Immunodeficiency
     Dosage: 30 GRAM, EVERY 3 WEEKS
     Route: 042
     Dates: start: 202206

REACTIONS (3)
  - Brain fog [Unknown]
  - Illness [Recovering/Resolving]
  - Confusional state [Unknown]
